FAERS Safety Report 8056892-0 (Version None)
Quarter: 2012Q1

REPORT INFORMATION
  Report Type: 
  Country: None (occurrence: None)
  Receive Date: 20120119
  Receipt Date: 20120117
  Transmission Date: 20120608
  Serious: No
  Sender: FDA-Public Use
  Company Number: US-B.I. PHARMACEUTICALS,INC./RIDGEFIELD-2012-BP-00924BP

PATIENT
  Sex: Female

DRUGS (7)
  1. METHIMAZOLE [Concomitant]
     Indication: HYPERTHYROIDISM
     Dosage: 30 MG
     Route: 048
     Dates: start: 20120110
  2. ALDACTONE [Concomitant]
     Indication: HYPERTENSION
     Dosage: 25 MG
     Route: 048
     Dates: start: 20060101
  3. HYZAAR [Concomitant]
     Indication: HYPERTENSION
     Route: 048
     Dates: start: 20060101
  4. INDAPAMIDE [Concomitant]
     Indication: HYPERTENSION
     Dosage: 1.25 MG
     Route: 048
     Dates: start: 20060101
  5. PRADAXA [Suspect]
     Indication: ATRIAL FIBRILLATION
     Dosage: 300 MG
     Route: 048
     Dates: start: 20120110
  6. PRAVASTATIN [Concomitant]
     Indication: BLOOD CHOLESTEROL INCREASED
     Dosage: 40 MG
     Route: 048
     Dates: start: 20060101
  7. HYDROCHLOROTHIAZIDE [Concomitant]
     Indication: HYPERTENSION
     Dosage: 12.5 MG
     Route: 048
     Dates: start: 20060101

REACTIONS (2)
  - RETINAL HAEMORRHAGE [None]
  - VISUAL ACUITY REDUCED [None]
